FAERS Safety Report 4616868-X (Version None)
Quarter: 2005Q1

REPORT INFORMATION
  Report Type: 
  Country: None (occurrence: None)
  Receive Date: 20050321
  Receipt Date: 20040526
  Transmission Date: 20050727
  Serious: No
  Sender: FDA-Public Use
  Company Number: 8130

PATIENT
  Age: 41 Year
  Sex: Female

DRUGS (2)
  1. AMIODARONE [Suspect]
     Indication: ATRIAL FIBRILLATION
     Dosage: 200 MG
     Dates: start: 20000301
  2. WARFARIN [Suspect]
     Dosage: 75 MG WEEKLY

REACTIONS (9)
  - AUTOIMMUNE THYROIDITIS [None]
  - DISEASE RECURRENCE [None]
  - DRUG INTERACTION [None]
  - DYSPNOEA [None]
  - FATIGUE [None]
  - HYPERTHYROIDISM [None]
  - HYPOTHYROIDISM [None]
  - INTERNATIONAL NORMALISED RATIO INCREASED [None]
  - PALPITATIONS [None]
